FAERS Safety Report 10561731 (Version 4)
Quarter: 2015Q1

REPORT INFORMATION
  Report Type: Spontaneous
  Country: DE (occurrence: DE)
  Receive Date: 20141103
  Receipt Date: 20150130
  Transmission Date: 20150720
  Serious: Yes (Other)
  Sender: FDA-Public Use
  Company Number: DE-ALLERGAN-1422723US

PATIENT
  Age: 59 Year
  Sex: Female

DRUGS (2)
  1. LUMIGAN [Suspect]
     Active Substance: BIMATOPROST
     Indication: INTRAOCULAR PRESSURE INCREASED
     Dosage: 1 GTT, QOD
     Route: 047
     Dates: start: 20141118
  2. LUMIGAN [Suspect]
     Active Substance: BIMATOPROST
     Dosage: 1 GTT, UNK
     Route: 047
     Dates: start: 2012, end: 201410

REACTIONS (6)
  - Hypotension [Recovered/Resolved]
  - Dyspnoea [Recovered/Resolved]
  - Bradycardia [Recovering/Resolving]
  - Intentional product misuse [None]
  - Inappropriate schedule of drug administration [Unknown]
  - Extrasystoles [Recovered/Resolved]

NARRATIVE: CASE EVENT DATE: 201410
